FAERS Safety Report 4963540-2 (Version None)
Quarter: 2006Q2

REPORT INFORMATION
  Report Type: 
  Country: None (occurrence: None)
  Receive Date: 20060405
  Receipt Date: 20040211
  Transmission Date: 20061013
  Serious: Yes (Other)
  Sender: FDA-Public Use
  Company Number: 2004UW02967

PATIENT
  Age: 49 Year
  Sex: Male

DRUGS (13)
  1. CRESTOR [Suspect]
     Route: 048
     Dates: start: 20010301, end: 20040124
  2. CRESTOR [Interacting]
     Route: 048
     Dates: start: 20040124
  3. EZETROL [Interacting]
     Dates: start: 20031201
  4. VIOXX [Interacting]
     Dosage: APPROX. 2 PILLS A WEEK
     Dates: start: 20031201
  5. NIACIN [Concomitant]
  6. ASPIRIN [Concomitant]
  7. PLAVIX [Concomitant]
  8. ATENOLOL [Concomitant]
  9. ACCUPRIL [Concomitant]
  10. ALLOPURINOL [Concomitant]
  11. FOLIC ACID [Concomitant]
     Dosage: 5 MG/2 DAYS
  12. ASCORBIC ACID [Concomitant]
     Dosage: 500 MG/2 DAYS
  13. GLUCOSAMINE [Concomitant]

REACTIONS (3)
  - BLOOD CREATINE PHOSPHOKINASE INCREASED [None]
  - DRUG INTERACTION [None]
  - HEPATIC ENZYME INCREASED [None]
